FAERS Safety Report 20917234 (Version 2)
Quarter: 2022Q2

REPORT INFORMATION
  Report Type: Spontaneous
  Country: FR (occurrence: FR)
  Receive Date: 20220606
  Receipt Date: 20220620
  Transmission Date: 20220720
  Serious: Yes (Hospitalization, Other)
  Sender: FDA-Public Use
  Company Number: FR-AFSSAPS-GR20221254

PATIENT
  Age: 77 Year
  Sex: Female
  Weight: 68.5 kg

DRUGS (11)
  1. BROMAZEPAM [Suspect]
     Active Substance: BROMAZEPAM
     Indication: Intentional overdose
     Dosage: 11 DOSAGE FORM (6 MG)
     Route: 048
     Dates: start: 20220418, end: 20220418
  2. OXYCODONE [Suspect]
     Active Substance: OXYCODONE
     Indication: Intentional overdose
     Dosage: 20 DOSAGE FORM (120 MG)
     Route: 048
     Dates: start: 20220418, end: 20220418
  3. BROMAZEPAM [Suspect]
     Active Substance: BROMAZEPAM
     Indication: Intentional overdose
     Dosage: 30 DOSAGE FORM
     Route: 048
     Dates: start: 20220418, end: 20220418
  4. BROMAZEPAM [Suspect]
     Active Substance: BROMAZEPAM
     Dosage: 11 DOSAGE FORM
     Route: 065
     Dates: start: 20220418, end: 20220418
  5. OXAZEPAM [Suspect]
     Active Substance: OXAZEPAM
     Indication: Intentional overdose
     Dosage: 15 DOSAGE FORM
     Route: 048
     Dates: start: 20220418, end: 20220418
  6. LACTULOSE [Concomitant]
     Active Substance: LACTULOSE
     Indication: Product used for unknown indication
     Dosage: 2 SACHETS IN THE MORNING)
     Route: 065
  7. LORAZEPAM [Concomitant]
     Active Substance: LORAZEPAM
     Indication: Anxiety
     Dosage: ONCE A DAY (QD (2 TABLET + 1 TABLET X 2/D)
     Route: 065
  8. Melatoniin [Concomitant]
     Indication: Product used for unknown indication
     Dosage: 2 MILLIGRAM, ONCE A DAY (2 MG, QD (TABLET IN THE EVENING)
     Route: 065
  9. ACETAMINOPHEN [Concomitant]
     Active Substance: ACETAMINOPHEN
     Indication: Product used for unknown indication
     Dosage: UNK
     Route: 065
  10. QUETIAPINE [Concomitant]
     Active Substance: QUETIAPINE
     Indication: Product used for unknown indication
     Dosage: 1 DOSAGE FORM, ONCE A DAY
     Route: 065
  11. ZOPICLONE [Concomitant]
     Active Substance: ZOPICLONE
     Indication: Product used for unknown indication
     Dosage: 0.5 MILLIGRAM (0.5 MG, ((? TABLET IF NEEDED)
     Route: 065

REACTIONS (3)
  - Poisoning deliberate [Recovered/Resolved]
  - Coma [Recovered/Resolved]
  - Hypersomnia [Recovered/Resolved]

NARRATIVE: CASE EVENT DATE: 20220418
